FAERS Safety Report 25830890 (Version 2)
Quarter: 2025Q3

REPORT INFORMATION
  Report Type: Spontaneous
  Country: CN (occurrence: CN)
  Receive Date: 20250922
  Receipt Date: 20250930
  Transmission Date: 20251021
  Serious: Yes (Other)
  Sender: SANOFI AVENTIS
  Company Number: CN-MLMSERVICE-20250908-PI639994-00152-1

PATIENT
  Age: 46 Year
  Sex: Female

DRUGS (6)
  1. FLUOROURACIL [Suspect]
     Active Substance: FLUOROURACIL
     Indication: Rectal adenocarcinoma
     Dosage: 2400 MG/M2, QOW, ADMINISTERED VIA A 46-H CONTINUOUS INFUSION EVERY 2 WEEKS (Q2W).
     Dates: start: 2023
  2. IRINOTECAN [Suspect]
     Active Substance: IRINOTECAN
     Indication: Rectal adenocarcinoma
     Dosage: 150 MG/M2, QOW, ADMINISTERED VIA A 46-H CONTINUOUS INFUSION EVERY 2 WEEKS (Q2W).
     Dates: start: 2023
  3. OXALIPLATIN [Suspect]
     Active Substance: OXALIPLATIN
     Indication: Rectal adenocarcinoma
     Dosage: 85 MG/M2, QOW, ADMINISTERED VIA A 46-H CONTINUOUS INFUSION EVERY 2 WEEKS (Q2W).
     Dates: start: 2023
  4. LEUCOVORIN [Suspect]
     Active Substance: LEUCOVORIN\LEUCOVORIN CALCIUM
     Indication: Rectal adenocarcinoma
     Dosage: 400 MG/M2, QOW, ADMINISTERED VIA A 46-H CONTINUOUS INFUSION EVERY 2 WEEKS (Q2W).
     Dates: start: 2023
  5. CAMRELIZUMAB [Suspect]
     Active Substance: CAMRELIZUMAB
     Indication: Rectal adenocarcinoma
     Dosage: 200 MG/M2, Q4W, ADMINISTERED INTRAVENOUSLY EVERY 4 WEEKS FOR 2 CYCLES
     Route: 042
     Dates: start: 2023
  6. ENTECAVIR [Concomitant]
     Active Substance: ENTECAVIR
     Indication: Antiviral prophylaxis

REACTIONS (2)
  - Drug-induced liver injury [Recovered/Resolved]
  - Fatigue [Recovered/Resolved]

NARRATIVE: CASE EVENT DATE: 20230101
